FAERS Safety Report 23716122 (Version 1)
Quarter: 2024Q2

REPORT INFORMATION
  Report Type: Spontaneous
  Country: US (occurrence: US)
  Receive Date: 20240408
  Receipt Date: 20240408
  Transmission Date: 20240716
  Serious: Yes (Hospitalization, Other)
  Sender: FDA-Public Use
  Company Number: US-862174955-ML2024-02192

PATIENT
  Age: 55 Year
  Sex: Female

DRUGS (10)
  1. BUPROPION [Suspect]
     Active Substance: BUPROPION
     Indication: Bipolar I disorder
     Dosage: INCREASED FROM 150 MG TO 300 MG DAILY, PRIOR TO THE PRESENTATION
  2. BUPROPION [Suspect]
     Active Substance: BUPROPION
     Dosage: INCREASED FROM 150 MG TO 300 MG DAILY, PRIOR TO THE PRESENTATION
  3. DEUTETRABENAZINE [Suspect]
     Active Substance: DEUTETRABENAZINE
     Indication: Product used for unknown indication
     Dosage: INCREASED FROM 12 MG TO 24 MG DAILY, PRIOR TO THE PRESENTATION
  4. DEUTETRABENAZINE [Suspect]
     Active Substance: DEUTETRABENAZINE
     Dosage: INCREASED FROM 12 MG TO 24 MG DAILY, PRIOR TO THE PRESENTATION
  5. LITHIUM [Suspect]
     Active Substance: LITHIUM
     Indication: Bipolar I disorder
     Dosage: INCREASED FROM 600 MG TO 900 MG DAILY, PRIOR TO PRESENTATION
  6. LITHIUM [Suspect]
     Active Substance: LITHIUM
     Dosage: INCREASED FROM 600 MG TO 900 MG DAILY, PRIOR TO PRESENTATION
  7. PROPRANOLOL [Concomitant]
     Active Substance: PROPRANOLOL HYDROCHLORIDE
     Indication: Product used for unknown indication
     Dosage: INCREASED FROM 10 MG TO 20 MG DAILY, PRIOR TO THE PRESENTATION
  8. PROPRANOLOL [Concomitant]
     Active Substance: PROPRANOLOL HYDROCHLORIDE
     Dosage: INCREASED FROM 10 MG TO 20 MG DAILY, PRIOR TO THE PRESENTATION
  9. CLOZAPINE [Concomitant]
     Active Substance: CLOZAPINE
     Indication: Product used for unknown indication
     Dosage: DECREASED FROM 100 MG TO 50 MG NIGHTLY, PRIOR TO THE PRESENTATION
  10. CLOZAPINE [Concomitant]
     Active Substance: CLOZAPINE
     Dosage: DECREASED FROM 100 MG TO 50 MG NIGHTLY, PRIOR TO THE PRESENTATION

REACTIONS (12)
  - Bradycardia [Recovered/Resolved]
  - Toxicity to various agents [Unknown]
  - Electrocardiogram QT prolonged [Recovered/Resolved]
  - Blood creatinine increased [Unknown]
  - Dizziness [Recovered/Resolved]
  - Blood prolactin increased [Unknown]
  - Ataxia [Recovered/Resolved]
  - Tremor [Recovered/Resolved]
  - Aphasia [Recovered/Resolved]
  - Dysarthria [Recovered/Resolved]
  - Confusional state [Recovered/Resolved]
  - Drug interaction [Unknown]
